FAERS Safety Report 8492326-X (Version None)
Quarter: 2012Q3

REPORT INFORMATION
  Report Type: 
  Country: None (occurrence: None)
  Receive Date: 20120706
  Receipt Date: 20120705
  Transmission Date: 20120928
  Serious: Yes (Other)
  Sender: FDA-Public Use
  Company Number: IT-BAYER-2012-067347

PATIENT
  Age: 51 Year
  Sex: Male

DRUGS (3)
  1. CIPROFLOXACIN [Suspect]
     Indication: DIVERTICULITIS
     Dosage: DAILY DOSE 1000 MG
     Route: 048
     Dates: start: 20120512, end: 20120525
  2. METRONIDAZOLE [Concomitant]
     Dosage: UNK
     Dates: start: 20120512, end: 20120525
  3. SELEPARINA [Concomitant]
     Dosage: UNK
     Dates: start: 20120512, end: 20120525

REACTIONS (1)
  - DEEP VEIN THROMBOSIS [None]
